FAERS Safety Report 7298488-4 (Version None)
Quarter: 2011Q1

REPORT INFORMATION
  Report Type: 
  Country: None (occurrence: None)
  Receive Date: 20110217
  Receipt Date: 20110204
  Transmission Date: 20110831
  Serious: Yes (Hospitalization, Other)
  Sender: FDA-Public Use
  Company Number: US-BAYER-201034121NA

PATIENT
  Sex: Female

DRUGS (7)
  1. YAZ [Suspect]
     Indication: PRODUCT USED FOR UNKNOWN INDICATION
     Dosage: UNK UNK, QD
     Route: 048
     Dates: start: 20080701
  2. LOVENOX [Concomitant]
     Dosage: UNK
     Dates: start: 20080925
  3. CLONAZEPAM [Concomitant]
     Dosage: 1 MG, HS
     Route: 048
  4. YASMIN [Suspect]
     Indication: PRODUCT USED FOR UNKNOWN INDICATION
     Route: 048
  5. ADVIL [Concomitant]
     Indication: PHLEBITIS
     Dosage: 400 MG, TID
     Dates: start: 20080917
  6. COUMADIN [Concomitant]
     Dosage: UNK
     Dates: start: 20080925
  7. HYOSCYAMINE [Concomitant]

REACTIONS (1)
  - DEEP VEIN THROMBOSIS [None]
